FAERS Safety Report 9643476 (Version 9)
Quarter: 2015Q2

REPORT INFORMATION
  Report Type: Spontaneous
  Country: US (occurrence: US)
  Receive Date: 20131024
  Receipt Date: 20150410
  Transmission Date: 20150821
  Serious: Yes (Life-Threatening, Hospitalization, Disabling, Other)
  Sender: FDA-Public Use
  Company Number: US-ACTELION-A-NJ2013-85975

PATIENT
  Age: 35 Year
  Sex: Male

DRUGS (5)
  1. DOXYCYCLINE. [Suspect]
     Active Substance: DOXYCYCLINE
     Indication: PRODUCT USED FOR UNKNOWN INDICATION
     Route: 065
  2. TRACLEER [Suspect]
     Active Substance: BOSENTAN\BOSENTAN MONOHYDRATE
     Indication: PULMONARY ARTERIAL HYPERTENSION
     Dosage: 125 MG, BID
     Route: 048
     Dates: start: 2000
  3. REVATIO [Concomitant]
     Active Substance: SILDENAFIL CITRATE
     Dosage: 20 MG, UNK
  4. LANTUS [Concomitant]
     Active Substance: INSULIN GLARGINE
  5. NOVOLOG [Concomitant]
     Active Substance: INSULIN ASPART

REACTIONS (12)
  - Electrocauterisation [Unknown]
  - Epistaxis [Not Recovered/Not Resolved]
  - Pancreatitis [Recovering/Resolving]
  - Burn oesophageal [Not Recovered/Not Resolved]
  - Stent placement [Recovering/Resolving]
  - Transfusion [Recovering/Resolving]
  - Drug dose omission [Recovered/Resolved]
  - Gastrointestinal haemorrhage [Unknown]
  - Gastrointestinal vascular malformation [Unknown]
  - Anaemia [Unknown]
  - Fatigue [Recovering/Resolving]
  - Arteriovenous malformation [Recovering/Resolving]

NARRATIVE: CASE EVENT DATE: 20130701
